FAERS Safety Report 14980325 (Version 1)
Quarter: 2018Q2

REPORT INFORMATION
  Report Type: Spontaneous
  Country: HU (occurrence: HU)
  Receive Date: 20180606
  Receipt Date: 20180606
  Transmission Date: 20180711
  Serious: Yes (Other)
  Sender: FDA-Public Use
  Company Number: PHHY2018HU012561

PATIENT
  Sex: Female

DRUGS (5)
  1. NILOTINIB [Suspect]
     Active Substance: NILOTINIB
     Indication: ABDOMINAL DISCOMFORT
     Dosage: UNK
     Route: 065
     Dates: start: 20170922
  2. BOSUTINIB [Suspect]
     Active Substance: BOSUTINIB
     Indication: PRODUCT USED FOR UNKNOWN INDICATION
     Dosage: UNK
     Route: 065
     Dates: start: 20171026
  3. HYDROXYUREA. [Suspect]
     Active Substance: HYDROXYUREA
     Indication: PRODUCT USED FOR UNKNOWN INDICATION
     Route: 065
  4. IMATINIB [Suspect]
     Active Substance: IMATINIB
     Indication: PRODUCT USED FOR UNKNOWN INDICATION
     Dosage: 400 MG, QD (1X400MG)
     Route: 065
     Dates: start: 20150707
  5. DASATINIB. [Suspect]
     Active Substance: DASATINIB
     Indication: NEUTROPENIA
     Dosage: UNK
     Route: 065
     Dates: start: 20170106

REACTIONS (15)
  - Stevens-Johnson syndrome [Unknown]
  - Blood bilirubin increased [Unknown]
  - Psoriasis [Unknown]
  - Urticaria [Unknown]
  - Neutropenia [Unknown]
  - Pityriasis rosea [Unknown]
  - Skin hyperpigmentation [Unknown]
  - Abdominal discomfort [Unknown]
  - Periorbital oedema [Unknown]
  - Lichenoid keratosis [Unknown]
  - Cytogenetic analysis abnormal [Unknown]
  - Acute generalised exanthematous pustulosis [Unknown]
  - Neutrophilic dermatosis [Unknown]
  - Rash maculo-papular [Unknown]
  - Pigmentation disorder [Unknown]
